FAERS Safety Report 9013599 (Version 1)
Quarter: 2013Q1

REPORT INFORMATION
  Report Type: Spontaneous
  Country: US (occurrence: None)
  Receive Date: 20130107
  Receipt Date: 20130107
  Transmission Date: 20140127
  Serious: No
  Sender: FDA-Public Use
  Company Number: None

PATIENT
  Sex: Male

DRUGS (2)
  1. REVLIMID [Suspect]
     Indication: PLASMA CELL MYELOMA
  2. VELCADE MILLENNIUM [Suspect]
     Indication: PLASMA CELL MYELOMA

REACTIONS (7)
  - Rash [None]
  - Nausea [None]
  - Neuropathy peripheral [None]
  - Diarrhoea [None]
  - Libido decreased [None]
  - Temperature regulation disorder [None]
  - Cognitive disorder [None]
